FAERS Safety Report 15305545 (Version 1)
Quarter: 2018Q3

REPORT INFORMATION
  Report Type: Spontaneous
  Country: US (occurrence: US)
  Receive Date: 20180810
  Receipt Date: 20180810
  Transmission Date: 20181010
  Serious: No
  Sender: FDA-Public Use
  Company Number: None

PATIENT
  Sex: Female

DRUGS (2)
  1. HCTZ [Suspect]
     Active Substance: HYDROCHLOROTHIAZIDE
  2. METOPROLOL. [Suspect]
     Active Substance: METOPROLOL

REACTIONS (2)
  - Treatment failure [None]
  - Drug hypersensitivity [None]
